FAERS Safety Report 12924427 (Version 1)
Quarter: 2016Q4

REPORT INFORMATION
  Report Type: Spontaneous
  Country: US (occurrence: US)
  Receive Date: 20161109
  Receipt Date: 20161109
  Transmission Date: 20170207
  Serious: No
  Sender: FDA-Public Use
  Company Number: US-BRISTOL-MYERS SQUIBB COMPANY-BMS-2016-088002

PATIENT
  Age: 55 Year
  Sex: Male

DRUGS (1)
  1. NIVOLUMAB [Suspect]
     Active Substance: NIVOLUMAB
     Indication: LUNG NEOPLASM MALIGNANT
     Route: 042

REACTIONS (9)
  - Muscle spasms [Unknown]
  - Decreased appetite [Unknown]
  - Joint swelling [Unknown]
  - Back pain [Recovering/Resolving]
  - Constipation [Unknown]
  - Cough [Unknown]
  - Musculoskeletal pain [Unknown]
  - Arthralgia [Unknown]
  - Urine output decreased [Unknown]

NARRATIVE: CASE EVENT DATE: 20160308
